FAERS Safety Report 21445925 (Version 1)
Quarter: 2022Q4

REPORT INFORMATION
  Report Type: Spontaneous
  Country: US (occurrence: None)
  Receive Date: 20221011
  Receipt Date: 20221011
  Transmission Date: 20230113
  Serious: Yes (Disabling, Other)
  Sender: FDA-Public Use
  Company Number: None

PATIENT
  Age: 40 Year
  Sex: Male
  Weight: 50.4 kg

DRUGS (8)
  1. LISINOPRIL AND HYDROCHLOROTHIAZIDE [Suspect]
     Active Substance: HYDROCHLOROTHIAZIDE\LISINOPRIL
     Indication: Hypertension
     Dosage: OTHER QUANTITY : 1 TABLET(S);?
     Route: 048
     Dates: start: 20220909, end: 20220913
  2. AMLODIPINE [Concomitant]
     Active Substance: AMLODIPINE BESYLATE
  3. NORCO [Concomitant]
     Active Substance: ACETAMINOPHEN\HYDROCODONE BITARTRATE
  4. MELOXICAM [Concomitant]
     Active Substance: MELOXICAM
  5. nortryptiline [Concomitant]
  6. VITAMINS [Concomitant]
     Active Substance: VITAMINS
  7. VITAMIN C [Concomitant]
     Active Substance: ASCORBIC ACID
  8. CALCIUM [Concomitant]
     Active Substance: CALCIUM

REACTIONS (6)
  - Documented hypersensitivity to administered product [None]
  - Heart rate increased [None]
  - Palpitations [None]
  - Discomfort [None]
  - Sinus arrhythmia [None]
  - Left atrial enlargement [None]

NARRATIVE: CASE EVENT DATE: 20220910
